FAERS Safety Report 14169142 (Version 1)
Quarter: 2017Q4

REPORT INFORMATION
  Report Type: Spontaneous
  Country: CN (occurrence: CN)
  Receive Date: 20171107
  Receipt Date: 20171107
  Transmission Date: 20180321
  Serious: Yes (Other)
  Sender: FDA-Public Use
  Company Number: CN-ABBVIE-17P-035-2156311-00

PATIENT
  Age: 11 Year
  Sex: Female

DRUGS (2)
  1. DEPAKINE [Suspect]
     Active Substance: VALPROATE SODIUM
     Indication: EPILEPSY
     Route: 048
  2. DEPAKINE [Suspect]
     Active Substance: VALPROATE SODIUM
     Route: 048

REACTIONS (4)
  - Epilepsy [Recovered/Resolved]
  - Cerebrospinal fluid leakage [Unknown]
  - Product counterfeit [Unknown]
  - Product quality issue [Unknown]

NARRATIVE: CASE EVENT DATE: 20171020
